FAERS Safety Report 5777910-6 (Version None)
Quarter: 2008Q2

REPORT INFORMATION
  Report Type: 
  Country: None (occurrence: None)
  Receive Date: 20080618
  Receipt Date: 20080617
  Transmission Date: 20081010
  Serious: Yes (Life-Threatening)
  Sender: FDA-Public Use
  Company Number: US-MERCK-0802USA00812

PATIENT
  Age: 60 Year
  Sex: Female
  Weight: 70 kg

DRUGS (8)
  1. ZOCOR [Suspect]
     Indication: HYPERCHOLESTEROLAEMIA
     Route: 048
  2. ZOCOR [Suspect]
     Route: 048
     Dates: start: 20060101
  3. ZOCOR [Suspect]
     Route: 048
     Dates: start: 20060701
  4. VASOTEC [Concomitant]
     Route: 048
  5. LEVOXYL [Concomitant]
     Route: 065
  6. DIOVAN HCT [Concomitant]
     Route: 065
  7. SYMAX [Concomitant]
     Route: 065
  8. ASPIRIN [Concomitant]
     Route: 065

REACTIONS (1)
  - BACK PAIN [None]
